FAERS Safety Report 9731922 (Version 1)
Quarter: 2013Q4

REPORT INFORMATION
  Report Type: Spontaneous
  Country: US (occurrence: None)
  Receive Date: 20131204
  Receipt Date: 20131204
  Transmission Date: 20140711
  Serious: No
  Sender: FDA-Public Use
  Company Number: None

PATIENT
  Age: 78 Year
  Sex: Female
  Weight: 89.81 kg

DRUGS (7)
  1. GELNIQUE [Suspect]
     Indication: URINARY INCONTINENCE
     Dosage: 4 PUFFS - I ONLY TOOK 2
     Dates: start: 20130824, end: 20130825
  2. LOSARTAN [Concomitant]
  3. ACARBOSE [Concomitant]
  4. ALLOPURINOL [Concomitant]
  5. VESICARE [Concomitant]
  6. VITAMIN D 3 [Concomitant]
  7. C PAP [Concomitant]

REACTIONS (7)
  - Dizziness [None]
  - Eye pain [None]
  - Alopecia [None]
  - Visual impairment [None]
  - Visual acuity reduced [None]
  - Dry mouth [None]
  - Abnormal sensation in eye [None]
